FAERS Safety Report 8560439-X (Version None)
Quarter: 2012Q3

REPORT INFORMATION
  Report Type: 
  Country: None (occurrence: None)
  Receive Date: 20120802
  Receipt Date: 20120720
  Transmission Date: 20120928
  Serious: Yes (Hospitalization, Other)
  Sender: FDA-Public Use
  Company Number: JP-009507513-2012SP035847

PATIENT

DRUGS (8)
  1. PEG-INTRON [Suspect]
     Dosage: 1MCG/KG/WEEK
     Route: 058
     Dates: start: 20120410
  2. ALLOPURINOL [Concomitant]
     Indication: HYPERURICAEMIA
     Dosage: FORMULATION: POR
     Route: 048
     Dates: start: 20120410
  3. PEG-INTRON [Suspect]
     Indication: HEPATITIS C
     Dosage: 1.5MCG/KG/WEEK
     Route: 058
     Dates: start: 20120403, end: 20120409
  4. ANTIVIRAL (UNSPECIFIED) [Suspect]
     Indication: HEPATITIS C
     Dosage: 2250 MG, QD
     Route: 048
     Dates: start: 20120403
  5. ALLOPURINOL [Concomitant]
     Dosage: 100 MG, UNKNOWN
     Route: 065
     Dates: start: 20120406
  6. TELAVIC [Suspect]
     Indication: HEPATITIS C
     Route: 048
     Dates: start: 20120403, end: 20120613
  7. NERISONA [Concomitant]
     Indication: RASH
     Dosage: UNK UNK, UNKNOWN
     Route: 065
  8. REBETOL [Suspect]
     Indication: HEPATITIS C
     Dosage: 600 MG, QD
     Route: 048
     Dates: start: 20120403

REACTIONS (3)
  - ENANTHEMA [None]
  - RASH [None]
  - ERYTHEMA MULTIFORME [None]
